FAERS Safety Report 4898692-6 (Version None)
Quarter: 2006Q1

REPORT INFORMATION
  Report Type: 
  Country: None (occurrence: None)
  Receive Date: 20060202
  Receipt Date: 20060110
  Transmission Date: 20060701
  Serious: Yes (Hospitalization)
  Sender: FDA-Public Use
  Company Number: US-BRISTOL-MYERS SQUIBB COMPANY-13243027

PATIENT
  Age: 73 Year
  Sex: Male

DRUGS (3)
  1. CETUXIMAB [Suspect]
     Indication: NON-SMALL CELL LUNG CANCER
     Dosage: THERAPY INITIATED 05-OCT-05,CYCLE 5 INITIATED 28-DEC-05. CYCLE 5,2ND DOSE CETUXIMAB ON 04-JAN-06.
     Route: 042
     Dates: start: 20060104, end: 20060104
  2. CARBOPLATIN [Suspect]
     Indication: NON-SMALL CELL LUNG CANCER
     Dosage: THERAPY INITIATED 05-OCT-2005, CYCLE 5 INITIATED 28-DEC-2005.
     Route: 042
     Dates: start: 20051228, end: 20051228
  3. TAXOL [Suspect]
     Indication: NON-SMALL CELL LUNG CANCER
     Dosage: THERAPY INITIATED 05-OCT-2005,CYCLE 5 INITIATED 28-DEC-2005.
     Route: 042
     Dates: start: 20051228, end: 20051228

REACTIONS (2)
  - DEHYDRATION [None]
  - SEPSIS [None]
